FAERS Safety Report 17412726 (Version 13)
Quarter: 2023Q1

REPORT INFORMATION
  Report Type: Report from Study
  Country: US (occurrence: US)
  Receive Date: 20200213
  Receipt Date: 20230320
  Transmission Date: 20230418
  Serious: Yes (Hospitalization)
  Sender: FDA-Public Use
  Company Number: US-NOVARTISPH-NVSC2020US037403

PATIENT
  Age: 10 Year
  Sex: Female

DRUGS (7)
  1. ILARIS [Suspect]
     Active Substance: CANAKINUMAB
     Indication: Pyrexia
     Dosage: 150 MG, EVERY 3 WEEKS
     Route: 058
     Dates: start: 20170519
  2. ILARIS [Suspect]
     Active Substance: CANAKINUMAB
     Dosage: 150 MG Q3 WEEK
     Route: 058
     Dates: start: 20191024
  3. ILARIS [Suspect]
     Active Substance: CANAKINUMAB
     Dosage: 150 MG, EVERY 3 WEEKS
     Route: 058
     Dates: start: 20200521, end: 20200522
  4. ILARIS [Suspect]
     Active Substance: CANAKINUMAB
     Dosage: 150 MG, EVERY 21 DAYS
     Route: 058
  5. ILARIS [Suspect]
     Active Substance: CANAKINUMAB
     Dosage: 150 MG
     Route: 058
  6. ILARIS [Suspect]
     Active Substance: CANAKINUMAB
     Dosage: 150 MG, EVERY 3 WEEKS
     Route: 058
  7. TAMIFLU [Concomitant]
     Active Substance: OSELTAMIVIR PHOSPHATE
     Indication: Product used for unknown indication
     Dosage: UNK
     Route: 065
     Dates: start: 20200206

REACTIONS (14)
  - Abdominal discomfort [Unknown]
  - Influenza like illness [Unknown]
  - Cough [Unknown]
  - Oropharyngeal pain [Unknown]
  - Body temperature increased [Unknown]
  - Headache [Recovering/Resolving]
  - Abdominal pain upper [Unknown]
  - Injection site mass [Unknown]
  - Nasopharyngitis [Unknown]
  - Injection site pain [Unknown]
  - Injection site swelling [Unknown]
  - Injection site erythema [Unknown]
  - Product dose omission issue [Unknown]
  - Inappropriate schedule of product administration [Unknown]

NARRATIVE: CASE EVENT DATE: 20200204
